FAERS Safety Report 6841370-4 (Version None)
Quarter: 2010Q3

REPORT INFORMATION
  Report Type: 
  Country: None (occurrence: None)
  Receive Date: 20100714
  Receipt Date: 20070830
  Transmission Date: 20110219
  Serious: No
  Sender: FDA-Public Use
  Company Number: US-PFIZER INC-2007055293

PATIENT
  Sex: Female
  Weight: 72.727 kg

DRUGS (1)
  1. CHANTIX [Suspect]
     Indication: SMOKING CESSATION THERAPY
     Route: 048
     Dates: start: 20070601, end: 20070628

REACTIONS (3)
  - CHEST PAIN [None]
  - CONSTIPATION [None]
  - PARAESTHESIA [None]
